FAERS Safety Report 23253085 (Version 1)
Quarter: 2023Q4

REPORT INFORMATION
  Report Type: Spontaneous
  Country: US (occurrence: US)
  Receive Date: 20231201
  Receipt Date: 20231201
  Transmission Date: 20240110
  Serious: Yes (Disabling)
  Sender: FDA-Public Use
  Company Number: US-AMGEN-USASP2023213121

PATIENT
  Age: 68 Year
  Sex: Female

DRUGS (13)
  1. REPATHA [Suspect]
     Active Substance: EVOLOCUMAB
     Indication: Product used for unknown indication
     Dosage: 140 MILLIGRAM, Q2WK
     Route: 065
     Dates: start: 2022, end: 202308
  2. COVID-19 vaccine [Concomitant]
     Dosage: TWICE
  3. ASPIRIN [Concomitant]
     Active Substance: ASPIRIN
     Dosage: 81 MILLIGRAM
  4. VITAMIN D3 [Concomitant]
     Active Substance: CHOLECALCIFEROL
     Dosage: UNK
  5. HYDROCHLOROTHIAZIDE [Concomitant]
     Active Substance: HYDROCHLOROTHIAZIDE
     Dosage: UNK
  6. ISONIAZID [Concomitant]
     Active Substance: ISONIAZID
  7. METFORMIN [Concomitant]
     Active Substance: METFORMIN HYDROCHLORIDE
  8. METOPROLOL [Concomitant]
     Active Substance: METOPROLOL
  9. PRILOSEC [Concomitant]
     Active Substance: OMEPRAZOLE MAGNESIUM
  10. PREDNISONE [Concomitant]
     Active Substance: PREDNISONE
  11. RIFAPENTINE [Concomitant]
     Active Substance: RIFAPENTINE
  12. VITAMIN B6 [Concomitant]
     Active Substance: PYRIDOXINE HYDROCHLORIDE
  13. VALTREX [Concomitant]
     Active Substance: VALACYCLOVIR HYDROCHLORIDE
     Dosage: PRN

REACTIONS (1)
  - Necrotising myositis [Not Recovered/Not Resolved]

NARRATIVE: CASE EVENT DATE: 20231002
